FAERS Safety Report 19303440 (Version 2)
Quarter: 2022Q2

REPORT INFORMATION
  Report Type: Spontaneous
  Country: US (occurrence: US)
  Receive Date: 20210525
  Receipt Date: 20220516
  Transmission Date: 20220721
  Serious: No
  Sender: FDA-Public Use
  Company Number: US-PFIZER INC-2021245142

PATIENT
  Age: 56 Year
  Sex: Female

DRUGS (2)
  1. XELJANZ [Suspect]
     Active Substance: TOFACITINIB CITRATE
     Dosage: 5 MG
  2. XELJANZ [Suspect]
     Active Substance: TOFACITINIB CITRATE
     Dosage: 5 MG, DAILY (TAKING ONE PILL A DAY)

REACTIONS (6)
  - Intentional product misuse [Unknown]
  - Off label use [Unknown]
  - Herpes zoster [Unknown]
  - Nasopharyngitis [Unknown]
  - Pain [Unknown]
  - Hypoacusis [Unknown]
